FAERS Safety Report 15681295 (Version 1)
Quarter: 2018Q4

REPORT INFORMATION
  Report Type: Spontaneous
  Country: US (occurrence: US)
  Receive Date: 20181120
  Receipt Date: 20181120
  Transmission Date: 20190205
  Serious: Yes (Hospitalization)
  Sender: FDA-Public Use
  Company Number: None

PATIENT
  Age: 39 Year
  Sex: Female

DRUGS (10)
  1. ZOLPIDEM [Concomitant]
     Active Substance: ZOLPIDEM\ZOLPIDEM TARTRATE
  2. MEDROXYPR [Concomitant]
  3. MEDROXYPR [Concomitant]
  4. LEVETIRACEDTA [Concomitant]
  5. SIROLIMUS 1MG [Suspect]
     Active Substance: SIROLIMUS
     Route: 048
     Dates: start: 20160128
  6. SERTALINE [Concomitant]
     Active Substance: SERTRALINE HYDROCHLORIDE
  7. CALCITRIOL. [Concomitant]
     Active Substance: CALCITRIOL
  8. TACROLIMUS 1MG AND 0.5MG CAP [Suspect]
     Active Substance: TACROLIMUS
     Dosage: ?          OTHER FREQUENCY:EVERY EVENING;?
     Route: 048
  9. TACROLIMUS 1MG AND 0.5MG CAP [Suspect]
     Active Substance: TACROLIMUS
     Indication: RENAL TRANSPLANT
     Dosage: ?          OTHER FREQUENCY:EVERY MORNING; 1.5 NG EVERY EVENING?
     Route: 048
     Dates: start: 20170123
  10. SIROLIMUS 1 MG [Suspect]
     Active Substance: SIROLIMUS
     Indication: RENAL TRANSPLANT
     Route: 048

REACTIONS (1)
  - Hospitalisation [None]
